FAERS Safety Report 15642383 (Version 3)
Quarter: 2018Q4

REPORT INFORMATION
  Report Type: Spontaneous
  Country: JP (occurrence: JP)
  Receive Date: 20181121
  Receipt Date: 20181208
  Transmission Date: 20190205
  Serious: Yes (Death, Other)
  Sender: FDA-Public Use
  Company Number: JP-ROCHE-2217317

PATIENT
  Age: 7 Decade
  Sex: Male

DRUGS (1)
  1. XELODA [Suspect]
     Active Substance: CAPECITABINE
     Indication: RECTAL CANCER
     Dosage: DOSAGE IS UNCERTAIN.
     Route: 048

REACTIONS (13)
  - Procalcitonin increased [Unknown]
  - Septic shock [Fatal]
  - Disseminated intravascular coagulation [Fatal]
  - Pyrexia [Unknown]
  - Melaena [Unknown]
  - Diarrhoea [Unknown]
  - Vomiting [Unknown]
  - Cytomegalovirus enterocolitis [Unknown]
  - Abdominal pain [Unknown]
  - Neutrophil count decreased [Unknown]
  - Circulatory collapse [Fatal]
  - Pneumonia [Unknown]
  - Dihydropyrimidine dehydrogenase deficiency [Unknown]
